FAERS Safety Report 9955765 (Version 1)
Quarter: 2014Q1

REPORT INFORMATION
  Report Type: Report from Study
  Country: US (occurrence: US)
  Receive Date: 20140304
  Receipt Date: 20140304
  Transmission Date: 20141002
  Serious: No
  Sender: FDA-Public Use
  Company Number: US-ABBVIE-13P-163-1089182-00

PATIENT
  Age: 69 Year
  Sex: Female

DRUGS (9)
  1. HUMIRA [Suspect]
     Indication: RHEUMATOID ARTHRITIS
     Dates: start: 201101
  2. DIOVAN [Concomitant]
     Indication: HYPERTENSION
     Dosage: 320MG DAILY
  3. NORVASC [Concomitant]
     Indication: HYPERTENSION
     Dosage: 10MG DAILY
  4. AZULFIDINE [Concomitant]
     Indication: PRODUCT USED FOR UNKNOWN INDICATION
  5. LIPITOR [Concomitant]
     Indication: BLOOD CHOLESTEROL
     Dosage: 40MG DAILY
  6. ASPRIN [Concomitant]
     Indication: PROPHYLAXIS
     Dosage: 81MG DAILY
  7. VITAMIN D + CALCIUM [Concomitant]
     Indication: OSTEOPOROSIS
     Dosage: DAILY
  8. CELEXA [Concomitant]
     Indication: DEPRESSION
  9. FOLIC ACID [Concomitant]
     Indication: VITAMIN SUPPLEMENTATION
     Dosage: 1MG DAILY

REACTIONS (2)
  - Injection site mass [Recovered/Resolved]
  - Injection site pain [Recovered/Resolved]
